FAERS Safety Report 6042032-6 (Version None)
Quarter: 2009Q1

REPORT INFORMATION
  Report Type: 
  Country: None (occurrence: None)
  Receive Date: 20090116
  Receipt Date: 20090108
  Transmission Date: 20090719
  Serious: Yes (Life-Threatening)
  Sender: FDA-Public Use
  Company Number: GB-TEVA-183696ISR

PATIENT
  Age: 31 Year
  Sex: Male

DRUGS (1)
  1. CISPLATIN [Suspect]
     Indication: PERITONEAL MESOTHELIOMA MALIGNANT
     Route: 042
     Dates: start: 20081223, end: 20081223

REACTIONS (2)
  - ARTERIAL THROMBOSIS [None]
  - CHEST PAIN [None]
